FAERS Safety Report 4906994-X (Version None)
Quarter: 2006Q1

REPORT INFORMATION
  Report Type: 
  Country: None (occurrence: None)
  Receive Date: 20060207
  Receipt Date: 20060130
  Transmission Date: 20060701
  Serious: No
  Sender: FDA-Public Use
  Company Number: 28483

PATIENT
  Age: 63 Year
  Sex: Male

DRUGS (7)
  1. ALDARA [Suspect]
     Indication: ACTINIC KERATOSIS
     Dosage: 5 IN 1 WEEK (S) ), TOPICAL
     Route: 061
     Dates: start: 20051201, end: 20060101
  2. LIPITOR [Concomitant]
  3. HYZAAR [Concomitant]
  4. NEXIUM [Concomitant]
  5. ASPIRIN [Concomitant]
  6. VITAMINS [Concomitant]
  7. MOTRIN [Concomitant]

REACTIONS (7)
  - ANAPHYLACTIC REACTION [None]
  - APPLICATION SITE ERYTHEMA [None]
  - APPLICATION SITE EXFOLIATION [None]
  - APPLICATION SITE IRRITATION [None]
  - FOOD ALLERGY [None]
  - IMMUNE SYSTEM DISORDER [None]
  - URTICARIA GENERALISED [None]
